FAERS Safety Report 21253910 (Version 1)
Quarter: 2022Q3

REPORT INFORMATION
  Report Type: Spontaneous
  Country: ES (occurrence: ES)
  Receive Date: 20220825
  Receipt Date: 20220825
  Transmission Date: 20221027
  Serious: Yes (Hospitalization)
  Sender: FDA-Public Use
  Company Number: None

PATIENT
  Age: 71 Year
  Sex: Female

DRUGS (7)
  1. BEVACIZUMAB [Suspect]
     Active Substance: BEVACIZUMAB
     Indication: Adenocarcinoma of colon
     Route: 065
     Dates: start: 20171003, end: 20180123
  2. LEUCOVORIN [Suspect]
     Active Substance: LEUCOVORIN
     Indication: Adenocarcinoma of colon
     Route: 065
     Dates: start: 20171003, end: 20180123
  3. FLUOROURACIL [Suspect]
     Active Substance: FLUOROURACIL
     Indication: Adenocarcinoma of colon
     Route: 065
     Dates: start: 20171003, end: 20180123
  4. IRINOTECAN [Suspect]
     Active Substance: IRINOTECAN
     Indication: Adenocarcinoma of colon
     Route: 065
     Dates: start: 20171003, end: 20180123
  5. MEGESTROL ACETATE [Concomitant]
     Active Substance: MEGESTROL ACETATE
  6. OMEPRAZOLE [Concomitant]
     Active Substance: OMEPRAZOLE
  7. ACETAMINOPHEN [Concomitant]
     Active Substance: ACETAMINOPHEN

REACTIONS (1)
  - Gastrointestinal toxicity [Recovered/Resolved]

NARRATIVE: CASE EVENT DATE: 20180130
